FAERS Safety Report 6963150-1 (Version None)
Quarter: 2010Q3

REPORT INFORMATION
  Report Type: 
  Country: None (occurrence: None)
  Receive Date: 20100902
  Receipt Date: 20100823
  Transmission Date: 20110219
  Serious: Yes (Other)
  Sender: FDA-Public Use
  Company Number: PHHY2010US56027

PATIENT
  Sex: Female

DRUGS (3)
  1. DIOVAN [Suspect]
     Dosage: 160 MG, ONCE A DAY
  2. GLIMEPIRIDE [Concomitant]
  3. METAMAX [Concomitant]

REACTIONS (3)
  - BLOOD PRESSURE DECREASED [None]
  - FALL [None]
  - PRURITUS [None]
